FAERS Safety Report 13293093 (Version 1)
Quarter: 2017Q1

REPORT INFORMATION
  Report Type: Spontaneous
  Country: US (occurrence: US)
  Receive Date: 20170303
  Receipt Date: 20170303
  Transmission Date: 20170428
  Serious: No
  Sender: FDA-Public Use
  Company Number: US-JNJFOC-20170103892

PATIENT
  Age: 86 Year
  Sex: Male
  Weight: 66.68 kg

DRUGS (14)
  1. METOPROLOL. [Concomitant]
     Active Substance: METOPROLOL
     Route: 050
  2. SIMVASTATIN. [Concomitant]
     Active Substance: SIMVASTATIN
     Route: 050
  3. ZOFRAN [Concomitant]
     Active Substance: ONDANSETRON HYDROCHLORIDE
     Dosage: FREQUENCY= EVERY 8 HOURS
     Route: 050
  4. LOSARTAN. [Concomitant]
     Active Substance: LOSARTAN
     Dosage: FREQUENCY= IN THE MORNING
     Route: 050
  5. GLIPIZIDE. [Concomitant]
     Active Substance: GLIPIZIDE
     Dosage: FREQUENCY= IN THE MORNING
     Route: 050
  6. XARELTO [Suspect]
     Active Substance: RIVAROXABAN
     Indication: CEREBROVASCULAR ACCIDENT PROPHYLAXIS
     Route: 048
     Dates: start: 20161229
  7. XARELTO [Suspect]
     Active Substance: RIVAROXABAN
     Indication: ATRIAL FIBRILLATION
     Route: 048
     Dates: start: 20161229
  8. LANTUS [Concomitant]
     Active Substance: INSULIN GLARGINE
     Dosage: DOSE= 35 UNITS.??FREQUENCY= IN THE MORNING
     Route: 065
  9. WARFARIN [Concomitant]
     Active Substance: WARFARIN
     Route: 050
     Dates: start: 20161229
  10. ALPRAZOLAM. [Concomitant]
     Active Substance: ALPRAZOLAM
     Route: 050
  11. BUSPIRONE [Concomitant]
     Active Substance: BUSPIRONE HYDROCHLORIDE
     Route: 050
  12. ESCITALOPRAM [Concomitant]
     Active Substance: ESCITALOPRAM OXALATE
     Dosage: FREQUENCY: EVERY MORNING
     Route: 050
  13. FINASTERIDE. [Concomitant]
     Active Substance: FINASTERIDE
     Route: 050
  14. TERAZOSIN HCL [Concomitant]
     Active Substance: TERAZOSIN HYDROCHLORIDE
     Dosage: FREQUENCY= AT BEDTIME
     Route: 050

REACTIONS (2)
  - Off label use [Unknown]
  - Prescribed underdose [Unknown]

NARRATIVE: CASE EVENT DATE: 20161229
